FAERS Safety Report 5176254-3 (Version None)
Quarter: 2006Q4

REPORT INFORMATION
  Report Type: 
  Country: None (occurrence: None)
  Receive Date: 20061215
  Receipt Date: 20061215
  Transmission Date: 20070319
  Serious: Yes (Other)
  Sender: FDA-Public Use
  Company Number: 200616200EU

PATIENT
  Age: 57 Year
  Sex: Female

DRUGS (1)
  1. NICORETTE [Suspect]
     Dosage: 2.5Z WEEKLY
     Route: 002
     Dates: start: 20030101

REACTIONS (3)
  - DEPENDENCE [None]
  - GASTRIC ULCER [None]
  - INTENTIONAL DRUG MISUSE [None]
